FAERS Safety Report 7198798-5 (Version None)
Quarter: 2010Q4

REPORT INFORMATION
  Report Type: 
  Country: None (occurrence: None)
  Receive Date: 20101227
  Receipt Date: 20101215
  Transmission Date: 20110411
  Serious: Yes (Hospitalization, Other)
  Sender: FDA-Public Use
  Company Number: US-ELI_LILLY_AND_COMPANY-US201001004286

PATIENT
  Sex: Female

DRUGS (1)
  1. FORTEO [Suspect]
     Indication: OSTEOPOROSIS
     Dosage: 20 UG, DAILY (1/D)
     Dates: start: 20090901

REACTIONS (8)
  - ASTHENIA [None]
  - ATYPICAL MYCOBACTERIAL INFECTION [None]
  - CHILLS [None]
  - DYSPNOEA [None]
  - LUNG INFECTION [None]
  - MALAISE [None]
  - PYREXIA [None]
  - RESPIRATORY DISORDER [None]
